FAERS Safety Report 14267206 (Version 1)
Quarter: 2017Q4

REPORT INFORMATION
  Report Type: Report from Study
  Country: US (occurrence: US)
  Receive Date: 20171211
  Receipt Date: 20171211
  Transmission Date: 20180321
  Serious: Yes (Death, Hospitalization, Other)
  Sender: FDA-Public Use
  Company Number: US-ROCHE-1327798

PATIENT
  Age: 37 Year
  Sex: Male
  Weight: 95.6 kg

DRUGS (16)
  1. BUSULFAN. [Concomitant]
     Active Substance: BUSULFAN
  2. CYTARABINE. [Concomitant]
     Active Substance: CYTARABINE
  3. METOPROLOL. [Concomitant]
     Active Substance: METOPROLOL
  4. ACYCLOVIR. [Concomitant]
     Active Substance: ACYCLOVIR
     Route: 065
  5. REGLAN [Concomitant]
     Active Substance: METOCLOPRAMIDE HYDROCHLORIDE
     Dosage: AT BEDTIME
     Route: 065
  6. FLUDARABINE [Concomitant]
     Active Substance: FLUDARABINE PHOSPHATE
  7. MITOXANTRONE [Concomitant]
     Active Substance: MITOXANTRONE HYDROCHLORIDE
  8. PROGRAF [Concomitant]
     Active Substance: TACROLIMUS\TACROLIMUS ANHYDROUS
  9. DAPSONE. [Concomitant]
     Active Substance: DAPSONE
     Route: 065
  10. RITUXIMAB. [Suspect]
     Active Substance: RITUXIMAB
     Route: 042
     Dates: start: 20110919, end: 20111003
  11. CELLCEPT [Concomitant]
     Active Substance: MYCOPHENOLATE MOFETIL\MYCOPHENOLATE MOFETIL HYDROCHLORIDE
  12. NEXIUM [Concomitant]
     Active Substance: ESOMEPRAZOLE MAGNESIUM
     Route: 065
  13. ATG [Concomitant]
     Active Substance: LAPINE T-LYMPHOCYTE IMMUNE GLOBULIN
  14. RITUXIMAB. [Suspect]
     Active Substance: RITUXIMAB
     Indication: PROPHYLAXIS AGAINST GRAFT VERSUS HOST DISEASE
     Dosage: DAY -6?DOSE AS PER PROTOCOL: PATIENTS RECEIVE RITUXIMAB IV ON DAYS -6, 1, 8, AND 15 AND ANTI-THYMOCY
     Route: 042
     Dates: start: 20110913
  15. FLUCONAZOLE. [Concomitant]
     Active Substance: FLUCONAZOLE
     Route: 065
  16. LISINOPRIL. [Concomitant]
     Active Substance: LISINOPRIL

REACTIONS (10)
  - Blood creatinine increased [Unknown]
  - Disease progression [Fatal]
  - Urinary tract infection [Unknown]
  - Hyperkalaemia [Unknown]
  - Hyponatraemia [Unknown]
  - BK virus infection [Not Recovered/Not Resolved]
  - Decreased appetite [Unknown]
  - Cystitis viral [Unknown]
  - Pneumonia [Unknown]
  - Hyperglycaemia [Unknown]

NARRATIVE: CASE EVENT DATE: 20110915
